FAERS Safety Report 15996376 (Version 1)
Quarter: 2019Q1

REPORT INFORMATION
  Report Type: Spontaneous
  Country: US (occurrence: US)
  Receive Date: 20190222
  Receipt Date: 20190222
  Transmission Date: 20190418
  Serious: No
  Sender: FDA-Public Use
  Company Number: US-BAYER-2019-038124

PATIENT
  Age: 49 Year
  Sex: Female

DRUGS (1)
  1. BETASERON [Suspect]
     Active Substance: INTERFERON BETA-1B
     Dosage: UNK
     Route: 058
     Dates: start: 201802

REACTIONS (1)
  - Product dose omission [None]

NARRATIVE: CASE EVENT DATE: 20190221
